FAERS Safety Report 7892917-0 (Version None)
Quarter: 2011Q4

REPORT INFORMATION
  Report Type: 
  Country: None (occurrence: None)
  Receive Date: 20111104
  Receipt Date: 20111027
  Transmission Date: 20120403
  Serious: Yes (Death)
  Sender: FDA-Public Use
  Company Number: CO-UCBSA-044540

PATIENT
  Age: 13 Year
  Sex: Female
  Weight: 30 kg

DRUGS (4)
  1. ATEMPERATOR [Concomitant]
     Indication: CONVULSION
     Dosage: TOTAL DAILY DOSE : 1800 MG
     Route: 048
  2. LAMICTAL [Concomitant]
     Indication: CONVULSION
     Dosage: TOTAL DAILY DOSE : 150 MG
     Route: 048
  3. KEPPRA [Suspect]
     Indication: CONVULSION
     Dosage: 100 MG/ML AT 50 MG/KG
     Route: 042
     Dates: start: 20111025, end: 20111026
  4. CLONAZEPAM [Concomitant]
     Indication: CONVULSION
     Dosage: TOTAL DAILY DOSE : 900 MCG
     Route: 042
     Dates: start: 20111025, end: 20111026

REACTIONS (1)
  - CARDIO-RESPIRATORY ARREST [None]
